FAERS Safety Report 6910212-0 (Version None)
Quarter: 2010Q3

REPORT INFORMATION
  Report Type: 
  Country: None (occurrence: None)
  Receive Date: 20100806
  Receipt Date: 20100728
  Transmission Date: 20110219
  Serious: Yes (Other)
  Sender: FDA-Public Use
  Company Number: FR-ASTRAZENECA-2010SE35720

PATIENT
  Age: 28602 Day
  Sex: Female

DRUGS (12)
  1. NEXIUM [Suspect]
     Route: 048
     Dates: end: 20100628
  2. CIFLOX [Suspect]
     Indication: INFECTION
     Route: 048
     Dates: start: 20100602, end: 20100628
  3. MEMANTINE HCL [Suspect]
     Indication: DEMENTIA
     Route: 048
  4. MEMANTINE HCL [Suspect]
     Route: 048
     Dates: start: 20100605, end: 20100628
  5. TAREG [Suspect]
     Indication: HYPERTENSION
     Route: 048
     Dates: end: 20100609
  6. ACETAMINOPHEN [Suspect]
     Route: 048
     Dates: end: 20100628
  7. FERROSTRANE [Suspect]
     Indication: ANAEMIA
     Route: 048
     Dates: end: 20100628
  8. MODAFINIL [Suspect]
     Indication: HYPERSOMNIA
     Route: 048
     Dates: start: 20100101
  9. CACIT VITAMIN D3 [Suspect]
     Route: 048
  10. TRIVASTAL [Suspect]
     Route: 048
     Dates: end: 20100628
  11. STABLON [Suspect]
     Route: 048
     Dates: end: 20100628
  12. ASPEGIC 1000 [Concomitant]

REACTIONS (1)
  - CYTOLYTIC HEPATITIS [None]
